FAERS Safety Report 7579212-4 (Version None)
Quarter: 2011Q2

REPORT INFORMATION
  Report Type: 
  Country: None (occurrence: None)
  Receive Date: 20110628
  Receipt Date: 20110616
  Transmission Date: 20111010
  Serious: Yes (Hospitalization)
  Sender: FDA-Public Use
  Company Number: US-ELI_LILLY_AND_COMPANY-US201106007153

PATIENT
  Sex: Female

DRUGS (1)
  1. ZYPREXA [Suspect]
     Dosage: 20 MG, DAILY (1/D)

REACTIONS (4)
  - BACTERIAL INFECTION [None]
  - BALANCE DISORDER [None]
  - ASTHENIA [None]
  - TOOTH DISORDER [None]
